FAERS Safety Report 12679730 (Version 2)
Quarter: 2016Q3

REPORT INFORMATION
  Report Type: Spontaneous
  Country: PE (occurrence: PE)
  Receive Date: 20160824
  Receipt Date: 20160831
  Transmission Date: 20161109
  Serious: Yes (Hospitalization)
  Sender: FDA-Public Use
  Company Number: PE-ASTRAZENECA-2016SE90316

PATIENT
  Age: 28107 Day
  Sex: Male

DRUGS (1)
  1. KOMBIGLYZE XR [Suspect]
     Active Substance: METFORMIN HYDROCHLORIDE\SAXAGLIPTIN HYDROCHLORIDE
     Indication: DIABETES MELLITUS
     Dosage: 5/1000MG ONE TABLET PER DAY
     Route: 048
     Dates: start: 20160308

REACTIONS (1)
  - Osteoarthritis [Unknown]
